FAERS Safety Report 12814383 (Version 1)
Quarter: 2016Q4

REPORT INFORMATION
  Report Type: Report from Study
  Country: US (occurrence: US)
  Receive Date: 20161006
  Receipt Date: 20161006
  Transmission Date: 20170207
  Serious: No
  Sender: FDA-Public Use
  Company Number: US-AMGEN-USASL2016079445

PATIENT
  Age: 83 Year
  Sex: Female

DRUGS (1)
  1. PROLIA [Suspect]
     Active Substance: DENOSUMAB
     Indication: PRODUCT USED FOR UNKNOWN INDICATION
     Dosage: UNK
     Route: 065

REACTIONS (14)
  - Spinal pain [Unknown]
  - Temporomandibular joint syndrome [Unknown]
  - Dysstasia [Recovered/Resolved]
  - Bone pain [Unknown]
  - Fall [Unknown]
  - Pain in jaw [Unknown]
  - Back disorder [Unknown]
  - Musculoskeletal disorder [Unknown]
  - Gait disturbance [Recovered/Resolved]
  - Pain [Unknown]
  - Arthropathy [Unknown]
  - Myalgia [Unknown]
  - Adverse drug reaction [Unknown]
  - Balance disorder [Unknown]

NARRATIVE: CASE EVENT DATE: 20160621
